FAERS Safety Report 22293996 (Version 1)
Quarter: 2023Q2

REPORT INFORMATION
  Report Type: Spontaneous
  Country: US (occurrence: US)
  Receive Date: 20230508
  Receipt Date: 20230508
  Transmission Date: 20230721
  Serious: No
  Sender: FDA-Public Use
  Company Number: US-GLAXOSMITHKLINE-USCH2023AMR020061

PATIENT
  Age: 75 Year
  Sex: Female

DRUGS (1)
  1. FLUTICASONE [Suspect]
     Active Substance: FLUTICASONE
     Indication: Asthma
     Dosage: UNK

REACTIONS (1)
  - Product use in unapproved indication [Unknown]
